FAERS Safety Report 19321953 (Version 4)
Quarter: 2022Q1

REPORT INFORMATION
  Report Type: Spontaneous
  Country: US (occurrence: US)
  Receive Date: 20210528
  Receipt Date: 20220129
  Transmission Date: 20220424
  Serious: No
  Sender: FDA-Public Use
  Company Number: US-SA-SAC20210527000103

PATIENT
  Sex: Female

DRUGS (1)
  1. CERDELGA [Suspect]
     Active Substance: ELIGLUSTAT
     Indication: Gaucher^s disease
     Dosage: 84 MG, BID
     Route: 048
     Dates: start: 20210203

REACTIONS (3)
  - Arthralgia [Unknown]
  - Product dose omission issue [Unknown]
  - Product dose omission in error [Unknown]
